FAERS Safety Report 7921080-2 (Version None)
Quarter: 2011Q4

REPORT INFORMATION
  Report Type: 
  Country: None (occurrence: None)
  Receive Date: 20111117
  Receipt Date: 20111114
  Transmission Date: 20120403
  Serious: Yes (Hospitalization, Disabling)
  Sender: FDA-Public Use
  Company Number: US-MERCK-1111USA01975

PATIENT
  Sex: Female

DRUGS (3)
  1. RECLAST [Suspect]
     Route: 041
     Dates: start: 20090701
  2. FOSAMAX [Suspect]
     Route: 048
     Dates: start: 20010501, end: 20060301
  3. BONIVA [Suspect]
     Route: 065
     Dates: start: 20060301, end: 20090101

REACTIONS (3)
  - CARDIAC ARREST [None]
  - FEMUR FRACTURE [None]
  - PULMONARY EMBOLISM [None]
